FAERS Safety Report 6640170-8 (Version None)
Quarter: 2010Q1

REPORT INFORMATION
  Report Type: 
  Country: None (occurrence: None)
  Receive Date: 20100318
  Receipt Date: 20100308
  Transmission Date: 20100710
  Serious: Yes (Other)
  Sender: FDA-Public Use
  Company Number: CA-ROCHE-689586

PATIENT
  Age: 56 Year
  Sex: Female
  Weight: 49 kg

DRUGS (2)
  1. ACCUTANE [Suspect]
     Indication: DRUG USE FOR UNKNOWN INDICATION
     Route: 065
  2. ACCUTANE [Suspect]
     Dosage: THERAPY DURATION: 02 MONTHS
     Route: 065

REACTIONS (10)
  - ANXIETY [None]
  - DEPRESSION [None]
  - DISTURBANCE IN ATTENTION [None]
  - DRY MOUTH [None]
  - HEADACHE [None]
  - NASAL DRYNESS [None]
  - NAUSEA [None]
  - NIGHTMARE [None]
  - SELF-INJURIOUS IDEATION [None]
  - VISUAL IMPAIRMENT [None]
